FAERS Safety Report 12449587 (Version 1)
Quarter: 2016Q2

REPORT INFORMATION
  Report Type: Other
  Country: HR (occurrence: HR)
  Receive Date: 20160609
  Receipt Date: 20160609
  Transmission Date: 20160815
  Serious: No
  Sender: FDA-Public Use
  Company Number: HR-LUPIN PHARMACEUTICALS INC.-2016-01638

PATIENT
  Age: 54 Year
  Sex: Male

DRUGS (6)
  1. ETHAMBUTOL [Concomitant]
     Active Substance: ETHAMBUTOL HYDROCHLORIDE
     Indication: MYCOBACTERIUM AVIUM COMPLEX INFECTION
     Route: 065
  2. CLARITHROMYCIN. [Concomitant]
     Active Substance: CLARITHROMYCIN
     Indication: MYCOBACTERIUM AVIUM COMPLEX INFECTION
     Route: 065
  3. RIFAMPIN. [Suspect]
     Active Substance: RIFAMPIN
     Indication: MYCOBACTERIUM AVIUM COMPLEX INFECTION
     Route: 065
  4. EVEROLIMUS [Interacting]
     Active Substance: EVEROLIMUS
     Indication: PNEUMONIA
  5. EVEROLIMUS [Interacting]
     Active Substance: EVEROLIMUS
     Indication: PNEUMOTHORAX
     Route: 065
  6. EVEROLIMUS [Interacting]
     Active Substance: EVEROLIMUS
     Indication: ACUTE KIDNEY INJURY

REACTIONS (2)
  - Drug level changed [Unknown]
  - Drug interaction [Unknown]
